FAERS Safety Report 6110148-1 (Version None)
Quarter: 2009Q1

REPORT INFORMATION
  Report Type: 
  Country: None (occurrence: None)
  Receive Date: 20090306
  Receipt Date: 20090306
  Transmission Date: 20090719
  Serious: No
  Sender: FDA-Public Use
  Company Number: None

PATIENT
  Sex: Female
  Weight: 72.73 kg

DRUGS (4)
  1. ZOLPIDEM TARTRATE [Suspect]
     Dosage: 10MG TABLET 10 MG QHS ORAL
     Route: 048
     Dates: start: 20090205, end: 20090305
  2. CLONIDINE [Concomitant]
  3. HALFLYTELY AND BISACODYL TABLETS (BISACODYL-PEG ELECTROLYTE SOLUTION) [Concomitant]
  4. LISINOPRIL [Concomitant]

REACTIONS (1)
  - POOR QUALITY SLEEP [None]
